FAERS Safety Report 8847447 (Version 2)
Quarter: 2012Q4

REPORT INFORMATION
  Report Type: 
  Country: US (occurrence: US)
  Receive Date: 20121018
  Receipt Date: 20121025
  Transmission Date: 20130627
  Serious: No
  Sender: FDA-Public Use
  Company Number: US-VERTEX PHARMACEUTICAL INC.-2012-022655

PATIENT
  Age: 53 Year
  Sex: Female
  Weight: 86 kg

DRUGS (13)
  1. VX-950 [Suspect]
     Indication: HEPATITIS C
     Dosage: 750 mg, tid
     Route: 048
  2. PEGASYS [Concomitant]
     Indication: HEPATITIS C
     Dosage: 180 ?g, UNK
  3. RIBAVIRIN [Concomitant]
     Indication: HEPATITIS C
     Dosage: 200 mg, UNK
  4. CELEBREX [Concomitant]
     Dosage: 200 mg, UNK
  5. BENADRYL                           /00000402/ [Concomitant]
     Dosage: 25 mg, UNK
  6. DIOVAN HCT [Concomitant]
     Dosage: 160- 25 mg
  7. WELLBUTRIN XL [Concomitant]
     Dosage: 150 mg, UNK
  8. AVEENO ANTI-ITCH                   /01554901/ [Concomitant]
  9. EUCERIN                            /00021201/ [Concomitant]
  10. ASPIRIN LOW [Concomitant]
     Dosage: 81 mg, UNK
  11. MULTIVITAMIN                       /00097801/ [Concomitant]
  12. OATMEAL BATH POW [Concomitant]
  13. ZYRTEC [Concomitant]
     Dosage: 10 mg, UNK

REACTIONS (6)
  - Depression [Unknown]
  - Aphagia [Unknown]
  - Asthenia [Unknown]
  - Fatigue [Unknown]
  - Pruritus [Unknown]
  - Nausea [Unknown]
